FAERS Safety Report 7181709-6 (Version None)
Quarter: 2010Q4

REPORT INFORMATION
  Report Type: 
  Country: None (occurrence: None)
  Receive Date: 20101221
  Receipt Date: 20100428
  Transmission Date: 20110411
  Serious: No
  Sender: FDA-Public Use
  Company Number: US-AMGEN-KDL409375

PATIENT

DRUGS (2)
  1. ENBREL [Suspect]
     Indication: PSORIATIC ARTHROPATHY
     Dosage: 25 MG, 2 TIMES/WK
     Route: 058
     Dates: start: 20070501
  2. ENBREL [Suspect]
     Indication: PSORIASIS

REACTIONS (5)
  - ADRENAL INSUFFICIENCY [None]
  - ARTHROPATHY [None]
  - JOINT INSTABILITY [None]
  - MOBILITY DECREASED [None]
  - SYNOVIAL CYST [None]
